FAERS Safety Report 7540126-7 (Version None)
Quarter: 2011Q2

REPORT INFORMATION
  Report Type: 
  Country: None (occurrence: None)
  Receive Date: 20110610
  Receipt Date: 20110601
  Transmission Date: 20111010
  Serious: Yes (Other)
  Sender: FDA-Public Use
  Company Number: DE-EISAI INC-E7389-01242-SPO-DE

PATIENT
  Age: 52 Year
  Sex: Female
  Weight: 50 kg

DRUGS (1)
  1. HALAVEN [Suspect]
     Route: 041
     Dates: start: 20110201

REACTIONS (1)
  - CARDIAC FAILURE [None]
